FAERS Safety Report 15483931 (Version 1)
Quarter: 2018Q4

REPORT INFORMATION
  Report Type: Spontaneous
  Country: US (occurrence: US)
  Receive Date: 20181010
  Receipt Date: 20181010
  Transmission Date: 20190205
  Serious: No
  Sender: FDA-Public Use
  Company Number: None

PATIENT
  Sex: Female

DRUGS (8)
  1. OCALIVA [Suspect]
     Active Substance: OBETICHOLIC ACID
     Indication: PRIMARY BILIARY CHOLANGITIS
     Route: 048
     Dates: start: 20180707
  2. LISINOPRIL. [Concomitant]
     Active Substance: LISINOPRIL
  3. AMOX/K CLAV [Concomitant]
     Active Substance: AMOXICILLIN\CLAVULANATE POTASSIUM
  4. VITAMIN D [Concomitant]
     Active Substance: CHOLECALCIFEROL
  5. LEVOFLOXACIN. [Concomitant]
     Active Substance: LEVOFLOXACIN
  6. NITROFURANTIN [Concomitant]
     Active Substance: NITROFURANTOIN
  7. TRAMADOL. [Concomitant]
     Active Substance: TRAMADOL
  8. VITAMIN A [Concomitant]
     Active Substance: VITAMIN A

REACTIONS (1)
  - Pruritus [None]
